FAERS Safety Report 8338423-0 (Version None)
Quarter: 2012Q1

REPORT INFORMATION
  Report Type: 
  Country: None (occurrence: None)
  Receive Date: 20120329
  Receipt Date: 20090526
  Transmission Date: 20120608
  Serious: Yes (Other)
  Sender: FDA-Public Use
  Company Number: PHEH2009US04596

PATIENT
  Sex: Female

DRUGS (8)
  1. PREMARIN [Concomitant]
  2. COZAAR [Concomitant]
  3. EXELON [Suspect]
     Indication: DEMENTIA
     Dosage: 4.5 MG, QD, TRANSDERMAL
     Route: 062
     Dates: start: 20090131, end: 20090201
  4. LEXAPRO [Concomitant]
  5. NAMENDA [Concomitant]
  6. NEXIUM [Concomitant]
  7. XANAX [Concomitant]
  8. CARVEDILOL [Concomitant]

REACTIONS (2)
  - TACHYCARDIA [None]
  - ABDOMINAL DISCOMFORT [None]
